FAERS Safety Report 6119850-9 (Version None)
Quarter: 2009Q1

REPORT INFORMATION
  Report Type: 
  Country: None (occurrence: None)
  Receive Date: 20090316
  Receipt Date: 20090310
  Transmission Date: 20090719
  Serious: Yes (Death, Hospitalization)
  Sender: FDA-Public Use
  Company Number: PHHY2009BG08659

PATIENT
  Sex: Male
  Weight: 35 kg

DRUGS (3)
  1. TOBI [Suspect]
     Indication: CYSTIC FIBROSIS
     Dosage: 300 MG, BID
     Dates: start: 20070501
  2. PULMOZYME [Concomitant]
  3. CREON [Concomitant]

REACTIONS (3)
  - CARDIAC FAILURE [None]
  - PSEUDOMONAS INFECTION [None]
  - RESPIRATORY FAILURE [None]
